FAERS Safety Report 7881967 (Version 3)
Quarter: 2013Q2

REPORT INFORMATION
  Report Type: Spontaneous
  Country: US (occurrence: US)
  Receive Date: 20110401
  Receipt Date: 20130514
  Transmission Date: 20140414
  Serious: No
  Sender: FDA-Public Use
  Company Number: US-ASTRAZENECA-2011SE08965

PATIENT
  Age: 67 Year
  Sex: Female

DRUGS (1)
  1. NEXIUM [Suspect]
     Route: 048
     Dates: start: 2009

REACTIONS (8)
  - Intervertebral disc protrusion [Unknown]
  - Aphagia [Unknown]
  - Dyspepsia [Unknown]
  - Hernia pain [Unknown]
  - Gastric disorder [Unknown]
  - Dysstasia [Unknown]
  - Malaise [Unknown]
  - Drug dose omission [Unknown]
